FAERS Safety Report 11923787 (Version 2)
Quarter: 2016Q3

REPORT INFORMATION
  Report Type: Report from Study
  Country: US (occurrence: US)
  Receive Date: 20160118
  Receipt Date: 20160915
  Transmission Date: 20161109
  Serious: Yes (Other)
  Sender: FDA-Public Use
  Company Number: US-ROCHE-1439211

PATIENT

DRUGS (2)
  1. RUXOLITINIB [Suspect]
     Active Substance: RUXOLITINIB
     Indication: PANCREATIC CARCINOMA METASTATIC
     Dosage: ON DAYS 1-21 OF A 21-DAY CYCLE
     Route: 048
  2. CAPECITABINE. [Suspect]
     Active Substance: CAPECITABINE
     Indication: PANCREATIC CARCINOMA METASTATIC
     Dosage: FROM DAYS 1-14 OF A 21-DAY CYCLE.
     Route: 048

REACTIONS (32)
  - Pyrexia [Unknown]
  - Hypotension [Unknown]
  - Trousseau^s syndrome [Unknown]
  - Anaemia [Unknown]
  - Abdominal pain [Unknown]
  - Stomatitis [Unknown]
  - Dizziness [Unknown]
  - Thrombosis [Unknown]
  - Fatigue [Unknown]
  - Dehydration [Unknown]
  - Back pain [Unknown]
  - Abdominal pain upper [Unknown]
  - Portal vein thrombosis [Unknown]
  - Diarrhoea [Unknown]
  - Pulmonary embolism [Unknown]
  - Oedema peripheral [Unknown]
  - Hyponatraemia [Unknown]
  - Neutropenia [Unknown]
  - Nausea [Unknown]
  - Asthenia [Unknown]
  - Thrombocytopenia [Unknown]
  - Vomiting [Unknown]
  - Decreased appetite [Unknown]
  - Peripheral sensory neuropathy [Unknown]
  - Pneumonia aspiration [Unknown]
  - Pneumonia klebsiella [Unknown]
  - Embolism [Unknown]
  - Deep vein thrombosis [Unknown]
  - Palmar-plantar erythrodysaesthesia syndrome [Unknown]
  - Constipation [Unknown]
  - Ascites [Unknown]
  - Pneumonia [Unknown]
